FAERS Safety Report 10387032 (Version 1)
Quarter: 2014Q1

REPORT INFORMATION
  Report Type: Spontaneous
  Country: US (occurrence: None)
  Receive Date: 20140306
  Receipt Date: 20140306
  Transmission Date: 20141002
  Serious: Yes (Other)
  Sender: FDA-Public Use
  Company Number: 163-21880-13093939

PATIENT
  Age: 85 Year
  Sex: Male
  Weight: 63.5 kg

DRUGS (13)
  1. REVLIMID (LENALIDOMIDE) (10 MILLIGRAM, CAPSULES) [Suspect]
     Indication: PLASMA CELL MYELOMA
     Dosage: 10 MG, 21 IN 28 D
     Route: 048
     Dates: start: 201308
  2. PROCRIT (ERYTHROPOIETIN) [Concomitant]
  3. NEULASTA (PEGFILGRASTIM) [Concomitant]
  4. NEUMEGA (OPRELVEKIN) [Concomitant]
  5. ARANESP (DARBEPOETIN ALFA) [Concomitant]
  6. COZAAR (LOSARTAN POTASSIUM) (50 MILLIGRAM, TABLETS) (LOSARTAN POTASSIUM) [Concomitant]
  7. CELEBREX (CELECOXIB) [Concomitant]
  8. DIOVAN (VALSARTAN) [Concomitant]
  9. NEOMYCIN [Concomitant]
  10. PYRIDOXINE [Concomitant]
  11. FOLIC ACID [Concomitant]
  12. MEGA MULTIVITAMINS (MULTIVITAMINS) [Concomitant]
  13. PREDNISONE [Concomitant]

REACTIONS (8)
  - Red blood cell count decreased [None]
  - Platelet count decreased [None]
  - Erythema [None]
  - Nasal congestion [None]
  - Local swelling [None]
  - Rash [None]
  - No therapeutic response [None]
  - Cerumen impaction [None]
